FAERS Safety Report 9823178 (Version 2)
Quarter: 2014Q1

REPORT INFORMATION
  Report Type: Spontaneous
  Country: US (occurrence: US)
  Receive Date: 20140116
  Receipt Date: 20140116
  Transmission Date: 20141002
  Serious: No
  Sender: FDA-Public Use
  Company Number: US-GILEAD-2011-0035939

PATIENT
  Sex: Female

DRUGS (5)
  1. LETAIRIS [Suspect]
     Indication: PULMONARY HYPERTENSION
     Dosage: 5 UNK, UNK
     Route: 048
     Dates: start: 20120426
  2. LETAIRIS [Suspect]
     Dosage: 5 MG, UNK
     Route: 048
     Dates: end: 20120305
  3. LETAIRIS [Suspect]
     Dosage: 10 MG, UNK
     Route: 048
     Dates: start: 20100215
  4. LETAIRIS [Suspect]
     Dosage: 5 UNK, UNK
     Route: 048
     Dates: start: 20100217, end: 20120207
  5. TYVASO [Concomitant]

REACTIONS (3)
  - Hepatic enzyme increased [Unknown]
  - Unevaluable event [Unknown]
  - Dyspnoea [Unknown]
